FAERS Safety Report 5507517-7 (Version None)
Quarter: 2007Q4

REPORT INFORMATION
  Report Type: 
  Country: None (occurrence: None)
  Receive Date: 20071105
  Receipt Date: 20071105
  Transmission Date: 20080405
  Serious: Yes (Life-Threatening, Disabling, Other)
  Sender: FDA-Public Use
  Company Number: None

PATIENT
  Age: 22 Year
  Sex: Male
  Weight: 92.9874 kg

DRUGS (2)
  1. ADDERALL XR 30 [Suspect]
     Indication: ANXIETY
     Dosage: 30MG ONE DAILY PO
     Route: 048
     Dates: start: 20060101, end: 20070101
  2. ADDERALL XR 30 [Suspect]
     Indication: DISTURBANCE IN ATTENTION
     Dosage: 30MG ONE DAILY PO
     Route: 048
     Dates: start: 20060101, end: 20070101

REACTIONS (6)
  - HEADACHE [None]
  - HEARING IMPAIRED [None]
  - HEMIPARESIS [None]
  - HYPOAESTHESIA [None]
  - SWELLING [None]
  - VISUAL DISTURBANCE [None]
